FAERS Safety Report 12552667 (Version 1)
Quarter: 2016Q3

REPORT INFORMATION
  Report Type: Spontaneous
  Country: IT (occurrence: IT)
  Receive Date: 20160713
  Receipt Date: 20160713
  Transmission Date: 20161109
  Serious: Yes (Hospitalization)
  Sender: FDA-Public Use
  Company Number: IT-ABBVIE-16P-083-1674765-00

PATIENT
  Age: 49 Year
  Sex: Female

DRUGS (3)
  1. NICARDIPINE [Suspect]
     Active Substance: NICARDIPINE
     Indication: INTENTIONAL SELF-INJURY
     Route: 048
     Dates: start: 20160611, end: 20160611
  2. ENAPREN [Suspect]
     Active Substance: ENALAPRIL MALEATE
     Indication: INTENTIONAL SELF-INJURY
     Route: 048
     Dates: start: 20160611, end: 20160611
  3. KLACID [Suspect]
     Active Substance: CLARITHROMYCIN
     Indication: INTENTIONAL SELF-INJURY
     Route: 048
     Dates: start: 20160611, end: 20160611

REACTIONS (2)
  - Intentional self-injury [Recovered/Resolved]
  - Hypotension [Recovered/Resolved]

NARRATIVE: CASE EVENT DATE: 20160611
